FAERS Safety Report 5066485-5 (Version None)
Quarter: 2006Q3

REPORT INFORMATION
  Report Type: 
  Country: None (occurrence: None)
  Receive Date: 20060731
  Receipt Date: 20060731
  Transmission Date: 20061208
  Serious: Yes (Hospitalization)
  Sender: FDA-Public Use
  Company Number: None

PATIENT
  Age: 58 Year
  Sex: Male
  Weight: 142 kg

DRUGS (13)
  1. DILTIAZEM [Suspect]
     Indication: HYPERTENSION
     Dosage: 240 MG   DAILY   PO
     Route: 048
     Dates: start: 20060713, end: 20060718
  2. CEPHALEXIN [Concomitant]
  3. DIPHENHYDRAMINE HCL [Concomitant]
  4. METHYLPREDNISOLONE [Concomitant]
  5. GLIPIZIDE [Concomitant]
  6. ASPIRIN [Concomitant]
  7. IRBESARTAN [Concomitant]
  8. ESOMEPRAZOLE MAGNESIUM [Concomitant]
  9. LEVOTHYROXINE SODIUM [Concomitant]
  10. PROPOXYPHENE HCL AND ACETAMINOPHEN [Concomitant]
  11. ACETAMINOPHEN [Concomitant]
  12. FUROSEMIDE [Concomitant]
  13. MECLIZINE [Concomitant]

REACTIONS (6)
  - EOSINOPHILIA [None]
  - LEUKOCYTOSIS [None]
  - PYREXIA [None]
  - RASH PRURITIC [None]
  - RASH PUSTULAR [None]
  - THERAPY NON-RESPONDER [None]
